FAERS Safety Report 6801700-6 (Version None)
Quarter: 2010Q2

REPORT INFORMATION
  Report Type: 
  Country: None (occurrence: None)
  Receive Date: 20100629
  Receipt Date: 20100624
  Transmission Date: 20101027
  Serious: Yes (Hospitalization)
  Sender: FDA-Public Use
  Company Number: US-BRISTOL-MYERS SQUIBB COMPANY-15166440

PATIENT
  Age: 63 Year
  Sex: Male

DRUGS (4)
  1. ONGLYZA [Suspect]
     Indication: DIABETES MELLITUS
     Dates: start: 20100601
  2. LISINOPRIL [Concomitant]
  3. PRAVACHOL [Concomitant]
  4. PRISTIQ [Concomitant]

REACTIONS (1)
  - PULMONARY EMBOLISM [None]
